FAERS Safety Report 19947661 (Version 2)
Quarter: 2021Q4

REPORT INFORMATION
  Report Type: Other
  Country: ZA (occurrence: ZA)
  Receive Date: 20211012
  Receipt Date: 20211025
  Transmission Date: 20220304
  Serious: Yes (Hospitalization)
  Sender: FDA-Public Use
  Company Number: ZA-ROCHE-2929221

PATIENT
  Age: 59 Year
  Sex: Female

DRUGS (1)
  1. ACTEMRA [Suspect]
     Active Substance: TOCILIZUMAB
     Indication: Rheumatoid arthritis
     Route: 058
     Dates: start: 20210921

REACTIONS (4)
  - Haematochezia [Unknown]
  - Kidney infection [Unknown]
  - Hypertension [Unknown]
  - Heart rate decreased [Unknown]

NARRATIVE: CASE EVENT DATE: 20211005
